FAERS Safety Report 7641206-8 (Version None)
Quarter: 2011Q3

REPORT INFORMATION
  Report Type: 
  Country: None (occurrence: None)
  Receive Date: 20110728
  Receipt Date: 20110721
  Transmission Date: 20111222
  Serious: Yes (Hospitalization)
  Sender: FDA-Public Use
  Company Number: PHHY2011US66230

PATIENT
  Age: 51 Year
  Sex: Female
  Weight: 89.116 kg

DRUGS (1)
  1. FANAPT [Suspect]
     Indication: BIPOLAR DISORDER
     Dosage: 2 MG, BID
     Route: 048

REACTIONS (3)
  - VOMITING [None]
  - DYSKINESIA [None]
  - NAUSEA [None]
